FAERS Safety Report 9352906 (Version 1)
Quarter: 2013Q2

REPORT INFORMATION
  Report Type: Spontaneous
  Country: US (occurrence: None)
  Receive Date: 20130614
  Receipt Date: 20130614
  Transmission Date: 20140414
  Serious: No
  Sender: FDA-Public Use
  Company Number: None

PATIENT
  Sex: 0

DRUGS (1)
  1. HCTZ [Suspect]
     Dates: start: 20130605, end: 20130613

REACTIONS (4)
  - Treatment failure [None]
  - Product substitution issue [None]
  - Oedema peripheral [None]
  - Oedema peripheral [None]
